FAERS Safety Report 16257962 (Version 1)
Quarter: 2019Q2

REPORT INFORMATION
  Report Type: Spontaneous
  Country: US (occurrence: US)
  Receive Date: 20190430
  Receipt Date: 20190430
  Transmission Date: 20190711
  Serious: Yes (Other)
  Sender: FDA-Public Use
  Company Number: US-BAYER-2019-085384

PATIENT
  Sex: Female

DRUGS (10)
  1. OPTIMARK [Suspect]
     Active Substance: GADOVERSETAMIDE
     Indication: NUCLEAR MAGNETIC RESONANCE IMAGING
     Dosage: UNK
     Dates: start: 20130517
  2. OMNISCAN [Suspect]
     Active Substance: GADODIAMIDE
     Indication: NUCLEAR MAGNETIC RESONANCE IMAGING SPINAL
     Dosage: UNK
     Dates: start: 20121218
  3. OMNISCAN [Suspect]
     Active Substance: GADODIAMIDE
     Indication: NUCLEAR MAGNETIC RESONANCE IMAGING SPINAL
     Dosage: UNK
     Dates: start: 20160324
  4. OPTIMARK [Suspect]
     Active Substance: GADOVERSETAMIDE
     Indication: NUCLEAR MAGNETIC RESONANCE IMAGING
     Dosage: UNK
     Dates: start: 20130814
  5. OMNISCAN [Suspect]
     Active Substance: GADODIAMIDE
     Indication: NUCLEAR MAGNETIC RESONANCE IMAGING SPINAL
     Dosage: UNK
     Dates: start: 20130716
  6. OPTIMARK [Suspect]
     Active Substance: GADOVERSETAMIDE
     Indication: NUCLEAR MAGNETIC RESONANCE IMAGING BRAIN
     Dosage: UNK
     Dates: start: 20080804
  7. OPTIMARK [Suspect]
     Active Substance: GADOVERSETAMIDE
     Indication: NUCLEAR MAGNETIC RESONANCE IMAGING
     Dosage: UNK
     Dates: start: 20070823
  8. OPTIMARK [Suspect]
     Active Substance: GADOVERSETAMIDE
     Indication: NUCLEAR MAGNETIC RESONANCE IMAGING
     Dosage: UNK
     Dates: start: 20161222
  9. MAGNEVIST [Suspect]
     Active Substance: GADOPENTETATE DIMEGLUMINE
     Indication: NUCLEAR MAGNETIC RESONANCE IMAGING BRAIN
     Dosage: UNK
     Dates: start: 20140715
  10. OPTIMARK [Suspect]
     Active Substance: GADOVERSETAMIDE
     Indication: NUCLEAR MAGNETIC RESONANCE IMAGING SPINAL
     Dosage: UNK
     Dates: start: 20100331

REACTIONS (23)
  - Dry skin [None]
  - Tooth fracture [None]
  - Muscle contractions involuntary [None]
  - Gadolinium deposition disease [None]
  - Skin hyperpigmentation [None]
  - Contrast media toxicity [None]
  - Rash [None]
  - Dermatitis [None]
  - Hyperaesthesia teeth [None]
  - Neuropathy peripheral [None]
  - Fatigue [None]
  - Skin exfoliation [None]
  - Hyperkeratosis [None]
  - Amnesia [None]
  - Arthralgia [None]
  - Burning sensation [None]
  - Bone pain [None]
  - Tooth discolouration [None]
  - Feeling abnormal [None]
  - Back pain [None]
  - Anosmia [None]
  - Skin atrophy [None]
  - Myalgia [None]
